FAERS Safety Report 4507039-6 (Version None)
Quarter: 2004Q4

REPORT INFORMATION
  Report Type: 
  Country: None (occurrence: None)
  Receive Date: 20041117
  Receipt Date: 20041110
  Transmission Date: 20050328
  Serious: No
  Sender: FDA-Public Use
  Company Number: 2004UW20749

PATIENT
  Age: 31 Year
  Sex: Male

DRUGS (1)
  1. NEXIUM [Suspect]
     Indication: DYSPEPSIA
     Dosage: 20 MG DAILY PO
     Route: 048
     Dates: start: 20040201

REACTIONS (6)
  - AGGRESSION [None]
  - ALCOHOLISM [None]
  - CRYING [None]
  - MEMORY IMPAIRMENT [None]
  - SCREAMING [None]
  - SUICIDAL IDEATION [None]
